FAERS Safety Report 10242484 (Version 5)
Quarter: 2015Q1

REPORT INFORMATION
  Report Type: Spontaneous
  Country: US (occurrence: US)
  Receive Date: 20140617
  Receipt Date: 20150106
  Transmission Date: 20150720
  Serious: Yes (Death, Hospitalization, Other)
  Sender: FDA-Public Use
  Company Number: US-MERCK-1406USA008454

PATIENT
  Sex: Male
  Weight: 77.55 kg

DRUGS (1)
  1. JANUVIA [Suspect]
     Active Substance: SITAGLIPTIN PHOSPHATE
     Indication: TYPE 2 DIABETES MELLITUS
     Dosage: 100 MG, QD
     Route: 048
     Dates: start: 20090115, end: 201102

REACTIONS (43)
  - Gastrointestinal surgery [Unknown]
  - Fluid retention [Unknown]
  - Breath sounds abnormal [Unknown]
  - Haematemesis [Unknown]
  - Bacterial sepsis [Fatal]
  - Biopsy pancreas [Unknown]
  - Cough [Unknown]
  - Adenocarcinoma pancreas [Unknown]
  - Renal cell carcinoma [Unknown]
  - Obstruction gastric [Unknown]
  - Meniscus injury [Unknown]
  - Diverticulum [Unknown]
  - Pancreatic pseudocyst [Unknown]
  - Pancytopenia [Unknown]
  - Ascites [Unknown]
  - Pancreatic carcinoma recurrent [Fatal]
  - Rotator cuff repair [Unknown]
  - Meniscus removal [Unknown]
  - Tremor [Unknown]
  - Gout [Unknown]
  - Pancreatectomy [Unknown]
  - Venous operation [Unknown]
  - Laparoscopy [Unknown]
  - Portal vein thrombosis [Unknown]
  - Neutropenic colitis [Recovered/Resolved]
  - Cardio-respiratory arrest [Fatal]
  - Hiatus hernia [Unknown]
  - Pleural effusion [Unknown]
  - Splenectomy [Unknown]
  - Metastases to lymph nodes [Unknown]
  - Haemorrhagic anaemia [Fatal]
  - Hypokalaemia [Unknown]
  - Hepatic steatosis [Unknown]
  - Myositis [Unknown]
  - Pneumonia [Unknown]
  - Haemorrhagic anaemia [Unknown]
  - Malnutrition [Unknown]
  - Tumour ulceration [Unknown]
  - Gastrooesophageal reflux disease [Unknown]
  - Appendicectomy [Unknown]
  - Biopsy [Unknown]
  - Erectile dysfunction [Unknown]
  - Pancreatic pseudocyst drainage [Unknown]

NARRATIVE: CASE EVENT DATE: 201102
